FAERS Safety Report 10158319 (Version 2)
Quarter: 2014Q2

REPORT INFORMATION
  Report Type: Spontaneous
  Country: US (occurrence: US)
  Receive Date: 20140507
  Receipt Date: 20140529
  Transmission Date: 20141212
  Serious: No
  Sender: FDA-Public Use
  Company Number: US-TEVA-480304USA

PATIENT
  Age: 25 Year
  Sex: Female
  Weight: 47.67 kg

DRUGS (2)
  1. PLAN B ONE-STEP [Suspect]
     Indication: POST COITAL CONTRACEPTION
     Dosage: 1.5 MILLIGRAM DAILY;
     Route: 048
     Dates: start: 20140224, end: 20140224
  2. DOXYCYCLINE [Concomitant]
     Indication: ACNE

REACTIONS (7)
  - Hot flush [Recovered/Resolved]
  - Presyncope [Recovered/Resolved]
  - Dizziness [Recovered/Resolved]
  - Fatigue [Recovered/Resolved]
  - Vomiting [Recovered/Resolved]
  - Menstruation delayed [Recovered/Resolved]
  - Menstruation irregular [Recovered/Resolved]
